FAERS Safety Report 11923987 (Version 2)
Quarter: 2016Q1

REPORT INFORMATION
  Report Type: Report from Study
  Country: US (occurrence: US)
  Receive Date: 20160118
  Receipt Date: 20160208
  Transmission Date: 20160526
  Serious: Yes (Hospitalization)
  Sender: FDA-Public Use
  Company Number: US-JNJFOC-20160107562

PATIENT
  Age: 79 Year
  Sex: Male

DRUGS (12)
  1. PRAVASTATIN [Concomitant]
     Active Substance: PRAVASTATIN\PRAVASTATIN SODIUM
     Dosage: 20 MG, QHS
  2. SPIRIVA [Concomitant]
     Active Substance: TIOTROPIUM BROMIDE MONOHYDRATE
     Dosage: UNK, QD
  3. DOXAZOSIN [Concomitant]
     Active Substance: DOXAZOSIN\DOXAZOSIN MESYLATE
     Dosage: 8 MG, QHS
  4. COLACE [Concomitant]
     Active Substance: DOCUSATE SODIUM
     Dosage: 100 MG, BID
  5. CYANOCOBALAMIN W/FOLIC ACID [Concomitant]
     Dosage: 1000 MCG,QD
  6. BREO ELLIPTA [Concomitant]
     Active Substance: FLUTICASONE FUROATE\VILANTEROL TRIFENATATE
     Dosage: 1 DF, QD
  7. IMBRUVICA [Suspect]
     Active Substance: IBRUTINIB
     Indication: MANTLE CELL LYMPHOMA
     Route: 048
     Dates: start: 20150915, end: 20160104
  8. VITAMIN B12 [Concomitant]
     Active Substance: CYANOCOBALAMIN
  9. MULTI VITAMIN [Concomitant]
     Active Substance: VITAMINS
     Dosage: 1 DF, QD
  10. METOPROLOL. [Concomitant]
     Active Substance: METOPROLOL
     Dosage: 25 MG, QHS
  11. PRILOSEC [Concomitant]
     Active Substance: OMEPRAZOLE MAGNESIUM
     Dosage: 20 MG, QD
  12. LORATADINE. [Concomitant]
     Active Substance: LORATADINE
     Dosage: 10 MG,QD

REACTIONS (8)
  - Inappropriate schedule of drug administration [Not Recovered/Not Resolved]
  - Hypomagnesaemia [Unknown]
  - Hypoalbuminaemia [Unknown]
  - Hypocalcaemia [Unknown]
  - Hypokalaemia [Unknown]
  - Asthenia [Recovering/Resolving]
  - Off label use [Not Recovered/Not Resolved]
  - Disease progression [Unknown]

NARRATIVE: CASE EVENT DATE: 20150915
